FAERS Safety Report 6266514-7 (Version None)
Quarter: 2009Q3

REPORT INFORMATION
  Report Type: 
  Country: None (occurrence: None)
  Receive Date: 20090713
  Receipt Date: 20090629
  Transmission Date: 20100115
  Serious: Yes (Hospitalization, Other)
  Sender: FDA-Public Use
  Company Number: CA-GENENTECH-282860

PATIENT
  Sex: Male
  Weight: 106.58 kg

DRUGS (1)
  1. XOLAIR [Suspect]
     Indication: ASTHMA
     Dosage: 300 MG, ^Q4^
     Route: 058
     Dates: start: 20071022

REACTIONS (5)
  - CYST [None]
  - OSTEOARTHRITIS [None]
  - PRODUCTIVE COUGH [None]
  - UPPER RESPIRATORY TRACT INFECTION [None]
  - WOUND INFECTION [None]
